APPROVED DRUG PRODUCT: ORLEX HC
Active Ingredient: ACETIC ACID, GLACIAL; HYDROCORTISONE
Strength: 2%;1%
Dosage Form/Route: SOLUTION/DROPS;OTIC
Application: A086844 | Product #001
Applicant: WARNER CHILCOTT CO LLC
Approved: Approved Prior to Jan 1, 1982 | RLD: No | RS: No | Type: DISCN